FAERS Safety Report 12599717 (Version 2)
Quarter: 2017Q3

REPORT INFORMATION
  Report Type: Spontaneous
  Country: US (occurrence: US)
  Receive Date: 20160727
  Receipt Date: 20170731
  Transmission Date: 20171127
  Serious: No
  Sender: FDA-Public Use
  Company Number: US-SA-2016SA081671

PATIENT
  Age: 51 Year
  Sex: Female

DRUGS (11)
  1. JAKAFI [Suspect]
     Active Substance: RUXOLITINIB
     Indication: POLYCYTHAEMIA VERA
     Route: 065
     Dates: start: 20160217
  2. LISINOPRIL. [Concomitant]
     Active Substance: LISINOPRIL
     Route: 065
  3. ECOTRIN [Concomitant]
     Active Substance: ASPIRIN
     Route: 065
  4. BENADRYL [Concomitant]
     Active Substance: DIPHENHYDRAMINE HYDROCHLORIDE
     Route: 065
  5. PANTHENOL/RETINOL/THIAMINE HYDROCHLORIDE/ASCORBIC ACID/ERGOCALCIFEROL/FOLIC ACID/RIBOFLAVIN/NICOTINA [Concomitant]
     Route: 065
  6. LORAZEPAM. [Concomitant]
     Active Substance: LORAZEPAM
     Route: 065
  7. AMBIEN [Suspect]
     Active Substance: ZOLPIDEM TARTRATE
     Indication: INSOMNIA
     Route: 048
  8. VITAMIN B2 [Concomitant]
     Active Substance: RIBOFLAVIN
     Route: 065
  9. BABY ASPIRIN [Concomitant]
     Active Substance: ASPIRIN
     Route: 065
  10. LEXAPRO [Concomitant]
     Active Substance: ESCITALOPRAM OXALATE
     Route: 065
  11. VITAMIN B12 [Concomitant]
     Active Substance: CYANOCOBALAMIN
     Route: 065

REACTIONS (14)
  - Insomnia [Unknown]
  - Somnolence [Unknown]
  - Contusion [Unknown]
  - Tinnitus [Unknown]
  - Intentional product misuse [Unknown]
  - Fatigue [Unknown]
  - Feeling abnormal [Unknown]
  - Chest pain [Unknown]
  - Headache [Unknown]
  - Migraine [Unknown]
  - Anxiety [Unknown]
  - Eye pain [Unknown]
  - Dizziness [Unknown]
  - Nausea [Unknown]
